FAERS Safety Report 12719560 (Version 4)
Quarter: 2016Q4

REPORT INFORMATION
  Report Type: Spontaneous
  Country: US (occurrence: US)
  Receive Date: 20160907
  Receipt Date: 20161024
  Transmission Date: 20170207
  Serious: Yes (Hospitalization, Other)
  Sender: FDA-Public Use
  Company Number: US-ALEXION PHARMACEUTICALS INC.-A201606533

PATIENT
  Age: 43 Year
  Sex: Female

DRUGS (1)
  1. SOLIRIS [Suspect]
     Active Substance: ECULIZUMAB
     Indication: HAEMOLYTIC URAEMIC SYNDROME
     Dosage: 1200 MG, Q2W
     Route: 042
     Dates: start: 20150730, end: 20161011

REACTIONS (10)
  - Angiolipoma [Recovered/Resolved]
  - Nausea [Unknown]
  - Muscular weakness [Recovered/Resolved]
  - Pain [Recovered/Resolved]
  - Renal cancer [Unknown]
  - Vomiting [Unknown]
  - Platelet count decreased [Recovering/Resolving]
  - Abdominal pain [Not Recovered/Not Resolved]
  - Computerised tomogram kidney abnormal [Not Recovered/Not Resolved]
  - Fatigue [Recovered/Resolved]

NARRATIVE: CASE EVENT DATE: 20160909
